FAERS Safety Report 4639030-3 (Version None)
Quarter: 2005Q2

REPORT INFORMATION
  Report Type: 
  Country: None (occurrence: None)
  Receive Date: 20050419
  Receipt Date: 20050408
  Transmission Date: 20051028
  Serious: Yes (Other)
  Sender: FDA-Public Use
  Company Number: PHFR2005GB01460

PATIENT
  Sex: Male

DRUGS (1)
  1. GLEEVEC [Suspect]
     Dates: start: 20041201

REACTIONS (1)
  - CHOLECYSTITIS [None]
